FAERS Safety Report 19306372 (Version 1)
Quarter: 2021Q2

REPORT INFORMATION
  Report Type: Spontaneous
  Country: US (occurrence: US)
  Receive Date: 20210525
  Receipt Date: 20210525
  Transmission Date: 20210717
  Serious: Yes (Other)
  Sender: FDA-Public Use
  Company Number: US-PURDUE-USA-2020-0221746

PATIENT
  Sex: Female

DRUGS (2)
  1. HYDROCODONE BITARTRATE AND ACETAMINOPHEN [Suspect]
     Active Substance: ACETAMINOPHEN\HYDROCODONE BITARTRATE
     Indication: PAIN
     Dosage: UNKNOWN
     Route: 048
  2. OXYCONTIN [Suspect]
     Active Substance: OXYCODONE HYDROCHLORIDE
     Indication: PAIN
     Dosage: UNKNOWN
     Route: 048

REACTIONS (19)
  - Mental fatigue [Unknown]
  - Restlessness [Unknown]
  - Anger [Unknown]
  - Fatigue [Unknown]
  - Affective disorder [Unknown]
  - Affect lability [Unknown]
  - Pain [Unknown]
  - Mental disorder [Unknown]
  - Adverse drug reaction [Unknown]
  - Drug dependence [Unknown]
  - Emotional distress [Unknown]
  - Liver injury [Unknown]
  - Anxiety [Unknown]
  - Confusional state [Unknown]
  - Dizziness [Unknown]
  - Abdominal discomfort [Unknown]
  - Depression [Unknown]
  - Drug abuse [Unknown]
  - Nausea [Unknown]
